FAERS Safety Report 25886726 (Version 1)
Quarter: 2025Q4

REPORT INFORMATION
  Report Type: Spontaneous
  Country: US (occurrence: None)
  Receive Date: 20251005
  Receipt Date: 20251005
  Transmission Date: 20260118
  Serious: Yes (Life-Threatening, Hospitalization, Other)
  Sender: FDA-CTU
  Company Number: None

PATIENT
  Age: 39 Year
  Sex: Female
  Weight: 62.1 kg

DRUGS (17)
  1. SIMPONI ARIA [Suspect]
     Active Substance: GOLIMUMAB
     Indication: Ankylosing spondylitis
  2. SULFASALAZINE [Concomitant]
     Active Substance: SULFASALAZINE
  3. SIMPONI ARIA [Concomitant]
     Active Substance: GOLIMUMAB
  4. ALPRAZOLAM [Concomitant]
     Active Substance: ALPRAZOLAM
  5. DEXTROAMPHETAMINE SACCHARATE, AMPHETAMINE ASPARTATE, DEXTROAMPHETAMINE [Concomitant]
     Active Substance: AMPHETAMINE ASPARTATE\AMPHETAMINE SULFATE\DEXTROAMPHETAMINE SACCHARATE\DEXTROAMPHETAMINE SULFATE
  6. ZALEPLON [Concomitant]
     Active Substance: ZALEPLON
  7. ERGOCALCIFEROL [Concomitant]
     Active Substance: ERGOCALCIFEROL
  8. CYANOCOBALAMIN [Concomitant]
     Active Substance: CYANOCOBALAMIN
  9. LEVETIRACETAM [Concomitant]
     Active Substance: LEVETIRACETAM
  10. PANTOPRAZOLE [Concomitant]
     Active Substance: PANTOPRAZOLE
  11. MELOXICAM [Concomitant]
     Active Substance: MELOXICAM
  12. Hydrocodone-acetminophen [Concomitant]
  13. FOLIC ACID [Concomitant]
     Active Substance: FOLIC ACID
  14. REMICADE [Concomitant]
     Active Substance: INFLIXIMAB
  15. RENFLEXIS [Concomitant]
     Active Substance: INFLIXIMAB-ABDA
  16. SIMPONI ARIA [Concomitant]
     Active Substance: GOLIMUMAB
  17. VITAMINS [Concomitant]
     Active Substance: VITAMINS

REACTIONS (10)
  - Infusion related reaction [None]
  - Laboratory test abnormal [None]
  - Endocarditis [None]
  - C-reactive protein increased [None]
  - Systemic inflammatory response syndrome [None]
  - Reticulocyte count decreased [None]
  - Myelosuppression [None]
  - Von Willebrand^s factor antigen increased [None]
  - Autoimmune disorder [None]
  - Mitral valve calcification [None]

NARRATIVE: CASE EVENT DATE: 20251002
